FAERS Safety Report 24324763 (Version 1)
Quarter: 2024Q3

REPORT INFORMATION
  Report Type: Spontaneous
  Country: US (occurrence: US)
  Receive Date: 20240916
  Receipt Date: 20240916
  Transmission Date: 20241017
  Serious: No
  Sender: PAREXEL
  Company Number: US-Stemline Therapeutics, Inc.-2024ST002874

PATIENT
  Age: 64 Year
  Sex: Female

DRUGS (4)
  1. ORSERDU [Suspect]
     Active Substance: ELACESTRANT
     Indication: Product used for unknown indication
     Dates: start: 202402
  2. ORSERDU [Suspect]
     Active Substance: ELACESTRANT
  3. PROCHLORPERAZINE [Concomitant]
     Active Substance: PROCHLORPERAZINE
     Indication: Product used for unknown indication
  4. VITAMINS [Concomitant]
     Active Substance: VITAMINS
     Indication: Product used for unknown indication

REACTIONS (2)
  - Nausea [Unknown]
  - Fatigue [Unknown]
